FAERS Safety Report 5152485-3 (Version None)
Quarter: 2006Q4

REPORT INFORMATION
  Report Type: 
  Country: None (occurrence: None)
  Receive Date: 20061116
  Receipt Date: 20061103
  Transmission Date: 20070319
  Serious: No
  Sender: FDA-Public Use
  Company Number: CA-ELI_LILLY_AND_COMPANY-CA200611001861

PATIENT
  Sex: Male

DRUGS (5)
  1. CIALIS [Suspect]
     Indication: ERECTILE DYSFUNCTION
     Dosage: 5 MG, AS NEEDED
     Dates: start: 20061026, end: 20061026
  2. CIALIS [Suspect]
     Dosage: 10 MG, AS NEEDED
     Dates: start: 20061102, end: 20061102
  3. APO-TRIAZIDE [Concomitant]
     Indication: BLOOD PRESSURE
     Dosage: 25 MG, DAILY (1/D)
     Route: 048
  4. ATENOLOL [Concomitant]
     Indication: BLOOD PRESSURE
     Dosage: 25 MG, DAILY (1/D)
     Route: 048
     Dates: start: 20061101
  5. ACETYLSALICYLIC ACID SRT [Concomitant]
     Dosage: 81 MG, DAILY (1/D)

REACTIONS (3)
  - HALO VISION [None]
  - THERAPEUTIC RESPONSE DECREASED [None]
  - VISION BLURRED [None]
